FAERS Safety Report 19659533 (Version 1)
Quarter: 2021Q3

REPORT INFORMATION
  Report Type: Spontaneous
  Country: CN (occurrence: CN)
  Receive Date: 20210804
  Receipt Date: 20210804
  Transmission Date: 20211014
  Serious: Yes (Other)
  Sender: FDA-Public Use
  Company Number: CN-JNJFOC-20210805447

PATIENT
  Age: 82 Year
  Sex: Male
  Weight: 64.6 kg

DRUGS (2)
  1. TRAMADOL HYDROCHLORIDE. [Suspect]
     Active Substance: TRAMADOL HYDROCHLORIDE
     Indication: POST HERPETIC NEURALGIA
     Route: 065
  2. TRAMADOL HYDROCHLORIDE. [Suspect]
     Active Substance: TRAMADOL HYDROCHLORIDE
     Indication: PAIN
     Dosage: 0.1 GRAM, 2/DAY
     Route: 048
     Dates: start: 20210718, end: 20210720

REACTIONS (3)
  - Productive cough [Recovering/Resolving]
  - Speech disorder [Recovering/Resolving]
  - Unresponsive to stimuli [Recovering/Resolving]

NARRATIVE: CASE EVENT DATE: 20210719
